FAERS Safety Report 8755801 (Version 5)
Quarter: 2012Q4

REPORT INFORMATION
  Report Type: 
  Country: US (occurrence: US)
  Receive Date: 20120827
  Receipt Date: 20121010
  Transmission Date: 20130627
  Serious: No
  Sender: FDA-Public Use
  Company Number: US-PFIZER INC-2012206174

PATIENT
  Age: 31 Year
  Sex: Female
  Weight: 54.42 kg

DRUGS (4)
  1. LYRICA [Suspect]
     Indication: FIBROMYALGIA
     Dosage: 150 mg, 2x/day
     Route: 048
     Dates: start: 2011
  2. LYRICA [Suspect]
     Indication: RESTLESS LEGS SYNDROME
     Dosage: 150 mg, 2x/day
     Route: 048
     Dates: start: 2012
  3. LYRICA [Suspect]
     Indication: NEURALGIA
  4. LYRICA [Suspect]
     Indication: PAIN

REACTIONS (3)
  - Burning sensation [Unknown]
  - Pain [Unknown]
  - Product quality issue [Unknown]
